FAERS Safety Report 6235627-8 (Version None)
Quarter: 2009Q2

REPORT INFORMATION
  Report Type: 
  Country: None (occurrence: None)
  Receive Date: 20090616
  Receipt Date: 20090602
  Transmission Date: 20091009
  Serious: Yes (Hospitalization)
  Sender: FDA-Public Use
  Company Number: 2009S1009659

PATIENT
  Age: 39 Year
  Sex: Male

DRUGS (5)
  1. MELOXICAM [Suspect]
     Indication: INTERVERTEBRAL DISC PROTRUSION
     Dosage: 15 MG; TWICE A DAY
  2. DICLOFENAC (DICLOFENAC) [Suspect]
     Indication: INTERVERTEBRAL DISC PROTRUSION
     Dosage: 75 MG; TWICE A DAY
  3. ASPIRIN [Suspect]
     Indication: ANTIPLATELET THERAPY
     Dosage: 100 MG;
  4. CLOPIDOGREL [Concomitant]
  5. CYPHER (SIROLIMUS) [Suspect]

REACTIONS (5)
  - ANGINA PECTORIS [None]
  - CHEST PAIN [None]
  - DRUG INTERACTION [None]
  - PLATELET FUNCTION TEST ABNORMAL [None]
  - THROMBOSIS IN DEVICE [None]
